FAERS Safety Report 23982780 (Version 3)
Quarter: 2024Q3

REPORT INFORMATION
  Report Type: Spontaneous
  Country: FR (occurrence: FR)
  Receive Date: 20240617
  Receipt Date: 20240719
  Transmission Date: 20241016
  Serious: Yes (Death, Other)
  Sender: MERCK
  Company Number: None

PATIENT
  Age: 59 Year
  Sex: Female
  Weight: 53 kg

DRUGS (1)
  1. KEYTRUDA [Suspect]
     Active Substance: PEMBROLIZUMAB
     Indication: Triple negative breast cancer
     Dosage: 200MG, QD
     Route: 042
     Dates: start: 20231108, end: 20240410

REACTIONS (1)
  - Hyperthyroidism [Fatal]

NARRATIVE: CASE EVENT DATE: 20240515
